FAERS Safety Report 4621217-7 (Version None)
Quarter: 2005Q1

REPORT INFORMATION
  Report Type: 
  Country: None (occurrence: None)
  Receive Date: 20050321
  Receipt Date: 20050321
  Transmission Date: 20050727
  Serious: Yes (Hospitalization)
  Sender: FDA-Public Use
  Company Number: None

PATIENT
  Age: 28 Year
  Sex: Female
  Weight: 77.1115 kg

DRUGS (1)
  1. MAGNESIUM SULFATE [Suspect]
     Indication: PREMATURE LABOUR
     Dosage: INTRAVENOUS
     Route: 042
     Dates: start: 20050307, end: 20050309

REACTIONS (2)
  - DRUG EXPOSURE DURING PREGNANCY [None]
  - PULMONARY OEDEMA [None]
